FAERS Safety Report 9303361 (Version 1)
Quarter: 2013Q2

REPORT INFORMATION
  Report Type: Spontaneous
  Country: US (occurrence: None)
  Receive Date: 20130521
  Receipt Date: 20130521
  Transmission Date: 20140414
  Serious: Yes (Other)
  Sender: FDA-Public Use
  Company Number: None

PATIENT
  Age: 55 Year
  Sex: Male
  Weight: 129.28 kg

DRUGS (1)
  1. LYRICA [Suspect]
     Indication: NEUROMA
     Dosage: 1 CAPSULE, 75MG, 2 TABLET DAY
     Dates: start: 20130202, end: 20130325

REACTIONS (8)
  - Suicidal ideation [None]
  - Depression [None]
  - Anger [None]
  - Memory impairment [None]
  - Mood swings [None]
  - Aggression [None]
  - Thinking abnormal [None]
  - Unevaluable event [None]
